FAERS Safety Report 10244470 (Version 2)
Quarter: 2014Q3

REPORT INFORMATION
  Report Type: Spontaneous
  Country: GB (occurrence: None)
  Receive Date: 20140616
  Receipt Date: 20140716
  Transmission Date: 20150326
  Serious: Yes (Disabling)
  Sender: FDA-Public Use
  Company Number: AUR-APL-2014-06402

PATIENT
  Age: 70 Year
  Sex: Female
  Weight: 56 kg

DRUGS (11)
  1. E45 (PARAFFIN, LIQUID, WHITE SOFT PARAFFIN, WOOL FAT) [Concomitant]
  2. PREDNISOLONE (PREDNISOLONE) [Concomitant]
     Active Substance: PREDNISOLONE
  3. CROTAMITON (CROTAMITON) (CREAM) [Concomitant]
     Active Substance: CROTAMITON
  4. SIMVASTATIN (SIMVASTATIN) [Concomitant]
     Active Substance: SIMVASTATIN
  5. GABAPENTIN (GABAPENTIN) UNKNOWN [Suspect]
     Active Substance: GABAPENTIN
     Indication: PRODUCT USED FOR UNKNOWN INDICATION
     Dates: start: 20140211
  6. BENDROFLUMETHIAZIDE (BENDROFLUMETHIAZIDE) [Concomitant]
     Active Substance: BENDROFLUMETHIAZIDE
  7. ADCAL (CARBAZOCHROME) [Concomitant]
  8. LEVOCETIRIZINE (LEVOCETIRIZINE) [Concomitant]
     Active Substance: LEVOCETIRIZINE
  9. LOSARTAN (LOSARTAN) [Concomitant]
     Active Substance: LOSARTAN
  10. HYDROXYZINE (HYDROXYZINE) [Concomitant]
     Active Substance: HYDROXYZINE HYDROCHLORIDE
  11. CHLORPHENAMINE (CHLORPHENAMINE) [Concomitant]

REACTIONS (1)
  - Dermatitis allergic [None]

NARRATIVE: CASE EVENT DATE: 20140512
